FAERS Safety Report 5698366-8 (Version None)
Quarter: 2008Q2

REPORT INFORMATION
  Report Type: 
  Country: None (occurrence: None)
  Receive Date: 20080403
  Receipt Date: 20080320
  Transmission Date: 20081010
  Serious: Yes (Other)
  Sender: FDA-Public Use
  Company Number: US023037

PATIENT
  Age: 41 Year
  Sex: Female

DRUGS (5)
  1. MODIODAL [Suspect]
     Indication: NARCOLEPSY
     Dosage: 100 MG QD ORAL
     Route: 048
     Dates: start: 20071009
  2. IBUPROFEN [Concomitant]
  3. TONOPAN [Concomitant]
  4. LEXATIN [Concomitant]
  5. TORECAN [Concomitant]

REACTIONS (4)
  - ANXIETY [None]
  - EXTRASYSTOLES [None]
  - HYPERTENSION [None]
  - NERVOUSNESS [None]
